FAERS Safety Report 11412007 (Version 1)
Quarter: 2015Q3

REPORT INFORMATION
  Report Type: Spontaneous
  Country: US (occurrence: US)
  Receive Date: 20150821
  Receipt Date: 20150821
  Transmission Date: 20151125
  Serious: No
  Sender: FDA-Public Use
  Company Number: US-ELI_LILLY_AND_COMPANY-US201107003161

PATIENT
  Age: 60 Year
  Sex: Male
  Weight: 126.98 kg

DRUGS (3)
  1. ANTIDEPRESSANTS [Concomitant]
     Active Substance: UNSPECIFIED INGREDIENT
  2. FUROSEMIDE. [Concomitant]
     Active Substance: FUROSEMIDE
  3. HUMULIN R [Suspect]
     Active Substance: INSULIN HUMAN
     Dosage: 75 U, BID
     Route: 065
     Dates: end: 201106

REACTIONS (2)
  - Weight increased [Recovering/Resolving]
  - Peripheral swelling [Unknown]
